FAERS Safety Report 24200002 (Version 1)
Quarter: 2024Q3

REPORT INFORMATION
  Report Type: Spontaneous
  Country: US (occurrence: US)
  Receive Date: 20240812
  Receipt Date: 20240812
  Transmission Date: 20241016
  Serious: Yes (Other)
  Sender: AUROBINDO
  Company Number: US-AUROBINDO-AUR-APL-2024-039088

PATIENT
  Age: 60 Year
  Sex: Female

DRUGS (4)
  1. NIFEDIPINE [Suspect]
     Active Substance: NIFEDIPINE
     Indication: Raynaud^s phenomenon
     Dosage: UNK
     Route: 065
  2. SILDENAFIL [Suspect]
     Active Substance: SILDENAFIL
     Indication: Raynaud^s phenomenon
     Dosage: UNK
     Route: 065
  3. EPOPROSTENOL [Suspect]
     Active Substance: EPOPROSTENOL
     Indication: Raynaud^s phenomenon
     Dosage: UNK, 1.5 NG/KG/MIN
     Route: 041
  4. EPOPROSTENOL [Suspect]
     Active Substance: EPOPROSTENOL
     Dosage: TITRATED UP TO 2 NG/KG/MIN EVERY 30 MIN TO 10 NG/KG/MIN
     Route: 041

REACTIONS (1)
  - Drug ineffective [Unknown]
